FAERS Safety Report 6772608-X (Version None)
Quarter: 2010Q2

REPORT INFORMATION
  Report Type: 
  Country: None (occurrence: None)
  Receive Date: 20100616
  Receipt Date: 20100208
  Transmission Date: 20101027
  Serious: No
  Sender: FDA-Public Use
  Company Number: US-ASTRAZENECA-2010SE05669

PATIENT
  Sex: Female
  Weight: 72.6 kg

DRUGS (4)
  1. PULMICORT FLEXHALER [Suspect]
     Indication: ASTHMA
     Dosage: 180 MCG 2 PUFFS QD
     Route: 055
     Dates: start: 20100130
  2. HCTZ [Concomitant]
  3. LOVASTATIN [Concomitant]
  4. DILTIAZEM [Concomitant]

REACTIONS (4)
  - COUGH [None]
  - DRUG EFFECT DECREASED [None]
  - INCREASED UPPER AIRWAY SECRETION [None]
  - WRONG TECHNIQUE IN DRUG USAGE PROCESS [None]
